FAERS Safety Report 18558048 (Version 1)
Quarter: 2020Q4

REPORT INFORMATION
  Report Type: Spontaneous
  Country: US (occurrence: US)
  Receive Date: 20201130
  Receipt Date: 20201130
  Transmission Date: 20210114
  Serious: No
  Sender: FDA-Public Use
  Company Number: US-AUROBINDO-AUR-APL-2020-049835

PATIENT
  Sex: Male
  Weight: 159 kg

DRUGS (3)
  1. ARIPIPRAZOLE TABLETS 15MG [Suspect]
     Active Substance: ARIPIPRAZOLE
     Indication: BIPOLAR DISORDER
     Dosage: 15 MILLIGRAM, ONCE A DAY
     Route: 048
     Dates: start: 201802
  2. CONCERTA [Concomitant]
     Active Substance: METHYLPHENIDATE HYDROCHLORIDE
     Indication: PRODUCT USED FOR UNKNOWN INDICATION
     Dosage: 54 MILLIGRAM, ONCE A DAY IN THE MORNING
     Route: 065
  3. ARIPIPRAZOLE TABLETS 15MG [Suspect]
     Active Substance: ARIPIPRAZOLE
     Dosage: 1 DOSAGE FORM, ONCE A DAY AT NIGHT
     Route: 048
     Dates: start: 20200909

REACTIONS (4)
  - Muscular weakness [Recovered/Resolved]
  - Product use in unapproved indication [Unknown]
  - Product substitution issue [Unknown]
  - Arthralgia [Recovered/Resolved]

NARRATIVE: CASE EVENT DATE: 202009
